FAERS Safety Report 11024272 (Version 3)
Quarter: 2019Q3

REPORT INFORMATION
  Report Type: Spontaneous
  Country: GB (occurrence: GB)
  Receive Date: 20150414
  Receipt Date: 20190926
  Transmission Date: 20191004
  Serious: Yes (Hospitalization)
  Sender: FDA-Public Use
  Company Number: GB-AUROBINDO-AUR-APL-2015-03105

PATIENT

DRUGS (4)
  1. METFORMIN 500MG [Suspect]
     Active Substance: METFORMIN HYDROCHLORIDE
     Indication: PRODUCT USED FOR UNKNOWN INDICATION
     Dosage: 500 MG, 3 TIMES A DAY
     Route: 064
  2. LANTUS [Suspect]
     Active Substance: INSULIN GLARGINE
     Indication: PRODUCT USED FOR UNKNOWN INDICATION
     Dosage: INCREASED TO ROUGHLY 16 IU, POSSIBLY HIGHER IN AUTUMN AND WINTER OF 2011
     Route: 064
  3. LANTUS [Suspect]
     Active Substance: INSULIN GLARGINE
     Dosage: 4 IU THEN INCREASED TO ROUGHLY 16 IU, POSSIBLY HIGHER
     Route: 064
     Dates: start: 2009
  4. LANTUS [Suspect]
     Active Substance: INSULIN GLARGINE
     Dosage: 4 INTERNATIONAL UNIT
     Route: 064
     Dates: start: 2011

REACTIONS (2)
  - Hypoglycaemia [Unknown]
  - Foetal exposure during pregnancy [Unknown]
